FAERS Safety Report 18199604 (Version 5)
Quarter: 2021Q2

REPORT INFORMATION
  Report Type: Report from Study
  Country: CN (occurrence: CN)
  Receive Date: 20200826
  Receipt Date: 20210421
  Transmission Date: 20210717
  Serious: Yes (Hospitalization, Other)
  Sender: FDA-Public Use
  Company Number: CN-SHIRE-CN202027538

PATIENT
  Age: 41 Year
  Sex: Male
  Weight: 54 kg

DRUGS (6)
  1. ADVATE [Suspect]
     Active Substance: ANTIHEMOPHILIC FACTOR, HUMAN RECOMBINANT
     Dosage: 250 INTERNATIONAL UNIT, PRN
     Route: 040
     Dates: start: 20200813
  2. ADVATE [Suspect]
     Active Substance: ANTIHEMOPHILIC FACTOR, HUMAN RECOMBINANT
     Dosage: 250 INTERNATIONAL UNIT, PRN
     Route: 040
     Dates: start: 20200813
  3. ADVATE [Suspect]
     Active Substance: ANTIHEMOPHILIC FACTOR, HUMAN RECOMBINANT
     Dosage: 250 INTERNATIONAL UNIT, PRN
     Route: 040
     Dates: start: 20200813
  4. ADVATE [Suspect]
     Active Substance: ANTIHEMOPHILIC FACTOR, HUMAN RECOMBINANT
     Indication: JOINT ARTHROPLASTY
     Dosage: 250 INTERNATIONAL UNIT, PRN
     Route: 050
     Dates: start: 20200813
  5. ADVATE [Suspect]
     Active Substance: ANTIHEMOPHILIC FACTOR, HUMAN RECOMBINANT
     Indication: JOINT ARTHROPLASTY
     Dosage: 250 INTERNATIONAL UNIT, PRN
     Route: 050
     Dates: start: 20200813
  6. ADVATE [Suspect]
     Active Substance: ANTIHEMOPHILIC FACTOR, HUMAN RECOMBINANT
     Indication: JOINT ARTHROPLASTY
     Dosage: 250 INTERNATIONAL UNIT, PRN
     Route: 050
     Dates: start: 20200813

REACTIONS (5)
  - Coagulation factor VIII level decreased [Unknown]
  - Post procedural haemorrhage [Unknown]
  - Bleeding time prolonged [Unknown]
  - Factor VIII inhibition [Unknown]
  - Drug ineffective [Unknown]

NARRATIVE: CASE EVENT DATE: 20200813
